FAERS Safety Report 17900898 (Version 1)
Quarter: 2020Q2

REPORT INFORMATION
  Report Type: Spontaneous
  Country: US (occurrence: US)
  Receive Date: 20200615
  Receipt Date: 20200615
  Transmission Date: 20200714
  Serious: Yes (Life-Threatening, Hospitalization)
  Sender: FDA-Public Use
  Company Number: None

PATIENT
  Age: 77 Year
  Sex: Female
  Weight: 117 kg

DRUGS (25)
  1. MONTELUKAST [Concomitant]
     Active Substance: MONTELUKAST SODIUM
  2. DICLOFENAC GEL [Concomitant]
     Active Substance: DICLOFENAC
  3. VITAMIN D3 [Concomitant]
     Active Substance: CHOLECALCIFEROL
  4. ACETAMINOPHEN. [Concomitant]
     Active Substance: ACETAMINOPHEN
  5. BREO ELLIPTA [Concomitant]
     Active Substance: FLUTICASONE FUROATE\VILANTEROL TRIFENATATE
  6. METROPROLOL SUCC [Concomitant]
     Active Substance: METOPROLOL SUCCINATE
  7. FLECAINIDE [Concomitant]
     Active Substance: FLECAINIDE
  8. CPAP [Concomitant]
     Active Substance: DEVICE
  9. ROSUVASTATIN. [Concomitant]
     Active Substance: ROSUVASTATIN
  10. EDOXABAN [Concomitant]
     Active Substance: EDOXABAN TOSYLATE
  11. MAGNESIUM OXIDE. [Concomitant]
     Active Substance: MAGNESIUM OXIDE
  12. BACLOFEN. [Concomitant]
     Active Substance: BACLOFEN
  13. ARTIFICIAL TEARS [Concomitant]
     Active Substance: GLYCERIN\HYPROMELLOSES\POLYETHYLENE GLYCOL 400
  14. EVENITY [Suspect]
     Active Substance: ROMOSOZUMAB-AQQG
     Indication: OSTEOPOROSIS
     Dates: start: 20200603, end: 20200603
  15. EVENITY INJ MONTHY [Concomitant]
  16. LOW DOSE ASPIRIN [Concomitant]
     Active Substance: ASPIRIN
  17. MIRALAX [Concomitant]
     Active Substance: POLYETHYLENE GLYCOL 3350
  18. MAGNESIUM OXIDE. [Concomitant]
     Active Substance: MAGNESIUM OXIDE
  19. OMEPRAZOLE. [Concomitant]
     Active Substance: OMEPRAZOLE
  20. VENTOLIN INHALER (PRN-RARELY) [Concomitant]
  21. NYSTATIN OINTMENT PRN [Concomitant]
  22. ENOXAPARIN INJ [Concomitant]
     Active Substance: ENOXAPARIN SODIUM
  23. PHENOBARBITAL. [Concomitant]
     Active Substance: PHENOBARBITAL
  24. FUROSEMIDE (PRN ONLY) [Concomitant]
  25. HYDROCODONE BITARTRATE AND ACETAMINOPHEN [Concomitant]
     Active Substance: ACETAMINOPHEN\HYDROCODONE BITARTRATE

REACTIONS (5)
  - Abdominal pain upper [None]
  - Pleural effusion [None]
  - Pulmonary embolism [None]
  - Musculoskeletal chest pain [None]
  - Deep vein thrombosis [None]

NARRATIVE: CASE EVENT DATE: 20200605
